FAERS Safety Report 20331564 (Version 1)
Quarter: 2022Q1

REPORT INFORMATION
  Report Type: Spontaneous
  Country: NL (occurrence: NL)
  Receive Date: 20220113
  Receipt Date: 20220113
  Transmission Date: 20220423
  Serious: Yes (Other)
  Sender: FDA-Public Use
  Company Number: NL-MYLANLABS-2022M1002607

PATIENT
  Age: 47 Year
  Sex: Male
  Weight: 54 kg

DRUGS (5)
  1. RISPERIDONE [Interacting]
     Active Substance: RISPERIDONE
     Indication: Sleep disorder
     Dosage: UNK
     Route: 065
  2. RISPERIDONE [Interacting]
     Active Substance: RISPERIDONE
     Dosage: (LAST REPORTED DOSE 5 MG)
     Route: 065
  3. CARBAMAZEPINE [Interacting]
     Active Substance: CARBAMAZEPINE
     Indication: Generalised tonic-clonic seizure
     Dosage: 800 MILLIGRAM
     Route: 065
  4. LORAZEPAM [Concomitant]
     Active Substance: LORAZEPAM
     Indication: Sleep disorder
     Dosage: UNK
     Route: 065
  5. LORAZEPAM [Concomitant]
     Active Substance: LORAZEPAM
     Dosage: LAST REPORTED DOSE 3.5 MG
     Route: 065

REACTIONS (3)
  - Labelled drug-drug interaction medication error [Unknown]
  - Drug level decreased [Unknown]
  - Off label use [Unknown]
